FAERS Safety Report 10034293 (Version 2)
Quarter: 2014Q2

REPORT INFORMATION
  Report Type: Spontaneous
  Country: US (occurrence: None)
  Receive Date: 20140321
  Receipt Date: 20140404
  Transmission Date: 20141212
  Serious: Yes (Hospitalization)
  Sender: FDA-Public Use
  Company Number: 2014P1002090

PATIENT
  Age: 6 Year
  Sex: Male
  Weight: 17.46 kg

DRUGS (3)
  1. ACTIMMUNE [Suspect]
     Indication: CHRONIC GRANULOMATOUS DISEASE
     Route: 030
  2. SPORANOX [Concomitant]
  3. SPECTRACEF [Concomitant]

REACTIONS (2)
  - Viral infection [None]
  - Upper respiratory tract infection [None]
